FAERS Safety Report 5796003-5 (Version None)
Quarter: 2008Q3

REPORT INFORMATION
  Report Type: 
  Country: None (occurrence: None)
  Receive Date: 20080701
  Receipt Date: 20080619
  Transmission Date: 20090109
  Serious: Yes (Other)
  Sender: FDA-Public Use
  Company Number: US-ROCHE-566635

PATIENT
  Sex: Female
  Weight: 63 kg

DRUGS (10)
  1. BONIVA [Suspect]
     Indication: OSTEOPOROSIS
     Dosage: THERAPY DURATION REPORTED AS 9-12 MONTHS.
     Route: 048
     Dates: start: 20060801, end: 20070801
  2. INDERAL [Concomitant]
     Indication: MIGRAINE PROPHYLAXIS
  3. FIORINAL [Concomitant]
  4. FIORINAL [Concomitant]
  5. FIORINAL [Concomitant]
  6. FIORINAL [Concomitant]
  7. FIORINAL [Concomitant]
  8. FIORINAL [Concomitant]
  9. FIORINAL [Concomitant]
  10. ANTIVERT [Concomitant]
     Dosage: TAKEN EVERY 6 HOURS
     Route: 048

REACTIONS (3)
  - OSTEOMYELITIS [None]
  - OSTEONECROSIS [None]
  - TOOTH ABSCESS [None]
